FAERS Safety Report 7743103-6 (Version None)
Quarter: 2011Q3

REPORT INFORMATION
  Report Type: 
  Country: None (occurrence: None)
  Receive Date: 20110908
  Receipt Date: 20110908
  Transmission Date: 20111222
  Serious: Yes (Death, Hospitalization)
  Sender: FDA-Public Use
  Company Number: None

PATIENT
  Age: 82 Year
  Sex: Male
  Weight: 83.9154 kg

DRUGS (2)
  1. SEROQUEL [Suspect]
     Indication: AGITATION
     Dosage: 25 MG 1 QHS ORAL
     Route: 048
     Dates: start: 20110614, end: 20110709
  2. SEROQUEL [Suspect]
     Indication: AGITATION
     Dosage: 25 MG 1 QHS ORAL
     Route: 048
     Dates: start: 20110505

REACTIONS (3)
  - DYSPHAGIA [None]
  - MUSCULOSKELETAL STIFFNESS [None]
  - PYREXIA [None]
